FAERS Safety Report 17511749 (Version 3)
Quarter: 2020Q2

REPORT INFORMATION
  Report Type: Spontaneous
  Country: JP (occurrence: JP)
  Receive Date: 20200307
  Receipt Date: 20200605
  Transmission Date: 20200713
  Serious: Yes (Hospitalization, Other)
  Sender: FDA-Public Use
  Company Number: JP-AMGEN-JPNSP2020037570

PATIENT
  Age: 81 Year
  Sex: Female
  Weight: 42 kg

DRUGS (5)
  1. ALINAMIN F [FURSULTIAMINE] [Concomitant]
     Indication: HYPOVITAMINOSIS
     Dosage: 25 MG, TID
     Route: 048
     Dates: start: 20131101
  2. LOXONIN [Concomitant]
     Active Substance: LOXOPROFEN SODIUM
     Indication: PAIN
     Dosage: 100 MG, TID
     Dates: start: 20131101
  3. OLMETEC [Concomitant]
     Active Substance: OLMESARTAN MEDOXOMIL
     Indication: HYPERTENSIVE HEART DISEASE
     Dosage: 20 MG, QD
     Route: 048
     Dates: start: 20131101
  4. PRALIA [Suspect]
     Active Substance: DENOSUMAB
     Indication: OSTEOPOROSIS
     Dosage: 60 MILLIGRAM, Q6MO
     Route: 058
     Dates: start: 20150127
  5. DENOTAS [Concomitant]
     Active Substance: CALCIUM CARBONATE\CHOLECALCIFEROL\MAGNESIUM CARBONATE
     Indication: OSTEOPOROSIS
     Dosage: 2 DF, QD
     Route: 048
     Dates: start: 20150127

REACTIONS (1)
  - Femur fracture [Unknown]

NARRATIVE: CASE EVENT DATE: 20200227
